FAERS Safety Report 24608821 (Version 5)
Quarter: 2025Q1

REPORT INFORMATION
  Report Type: Spontaneous
  Country: IL (occurrence: IL)
  Receive Date: 20241112
  Receipt Date: 20250121
  Transmission Date: 20250408
  Serious: No
  Sender: PFIZER
  Company Number: IL-PFIZER INC-PV202400144396

PATIENT
  Age: 6 Year
  Sex: Male

DRUGS (1)
  1. NGENLA [Suspect]
     Active Substance: SOMATROGON-GHLA
     Dosage: WEEKLY
     Route: 058

REACTIONS (4)
  - Injection site pain [Unknown]
  - Patient-device incompatibility [Unknown]
  - Injection site mass [Unknown]
  - Injection site swelling [Unknown]
